FAERS Safety Report 10103321 (Version 2)
Quarter: 2014Q4

REPORT INFORMATION
  Report Type: Spontaneous
  Country: US (occurrence: US)
  Receive Date: 20140424
  Receipt Date: 20141205
  Transmission Date: 20150528
  Serious: No
  Sender: FDA-Public Use
  Company Number: US-BRISTOL-MYERS SQUIBB COMPANY-20262770

PATIENT
  Age: 75 Year
  Sex: Male
  Weight: 96.6 kg

DRUGS (19)
  1. SPIRIVA [Concomitant]
     Active Substance: TIOTROPIUM BROMIDE MONOHYDRATE
     Dosage: INHALER
     Route: 055
  2. ADVAIR HFA [Concomitant]
     Active Substance: FLUTICASONE PROPIONATE\SALMETEROL XINAFOATE
     Indication: CHRONIC OBSTRUCTIVE PULMONARY DISEASE
     Dosage: 1 DF=250/50.UNITS NOS
  3. PROSCAR [Concomitant]
     Active Substance: FINASTERIDE
  4. LISINOPRIL. [Concomitant]
     Active Substance: LISINOPRIL
  5. FLONASE [Concomitant]
     Active Substance: FLUTICASONE PROPIONATE
     Dosage: 2 PUFFS IN EACH NOSTRIL?REDUCED DOSE : 1 PUFF A DAY
     Route: 045
  6. FINASTERIDE. [Concomitant]
     Active Substance: FINASTERIDE
  7. FLOVENT [Concomitant]
     Active Substance: FLUTICASONE PROPIONATE
  8. TOPROL XL [Concomitant]
     Active Substance: METOPROLOL SUCCINATE
  9. FLOMAX [Concomitant]
     Active Substance: TAMSULOSIN HYDROCHLORIDE
  10. PROCARDIA [Concomitant]
     Active Substance: NIFEDIPINE
  11. ELIQUIS [Suspect]
     Active Substance: APIXABAN
     Indication: CEREBROVASCULAR ACCIDENT PROPHYLAXIS
     Route: 048
     Dates: start: 201402
  12. MULTIVITAMIN [Concomitant]
     Active Substance: VITAMINS
  13. OMEPRAZOLE. [Concomitant]
     Active Substance: OMEPRAZOLE
  14. BAYER ASPIRIN [Concomitant]
     Active Substance: ASPIRIN
  15. RESTASIS [Concomitant]
     Active Substance: CYCLOSPORINE
     Indication: EYE DISORDER
  16. BENZONATATE. [Concomitant]
     Active Substance: BENZONATATE
  17. TAMSULOSIN [Concomitant]
     Active Substance: TAMSULOSIN
  18. SINGULAIR [Concomitant]
     Active Substance: MONTELUKAST SODIUM
  19. DILTIAZEM HYDROCHLORIDE EXTENDED RELEASE [Concomitant]
     Active Substance: DILTIAZEM HYDROCHLORIDE

REACTIONS (6)
  - Bladder disorder [Unknown]
  - Weight decreased [Unknown]
  - Prostatic disorder [Unknown]
  - Post procedural haemorrhage [Unknown]
  - Arthralgia [Unknown]
  - Joint swelling [Unknown]
